FAERS Safety Report 7367939-9 (Version None)
Quarter: 2011Q1

REPORT INFORMATION
  Report Type: 
  Country: None (occurrence: None)
  Receive Date: 20110322
  Receipt Date: 20110308
  Transmission Date: 20110831
  Serious: Yes (Other)
  Sender: FDA-Public Use
  Company Number: PHHY2011DE19322

PATIENT
  Sex: Male
  Weight: 1.8 kg

DRUGS (1)
  1. VALSARTAN [Suspect]
     Route: 064

REACTIONS (15)
  - PULMONARY HYPOPLASIA [None]
  - HYPOTONIA [None]
  - PREMATURE BABY [None]
  - SKULL MALFORMATION [None]
  - NEONATAL HYPOTENSION [None]
  - MUSCULAR WEAKNESS [None]
  - SMALL FOR DATES BABY [None]
  - APGAR SCORE LOW [None]
  - PNEUMOTHORAX [None]
  - HAND DEFORMITY [None]
  - DRUG EXPOSURE DURING PREGNANCY [None]
  - RENAL FAILURE [None]
  - BLOOD CREATINE INCREASED [None]
  - DEAFNESS NEUROSENSORY [None]
  - ULTRASOUND KIDNEY ABNORMAL [None]
